FAERS Safety Report 21744593 (Version 1)
Quarter: 2022Q4

REPORT INFORMATION
  Report Type: Report from Study
  Country: US (occurrence: US)
  Receive Date: 20221218
  Receipt Date: 20221218
  Transmission Date: 20230113
  Serious: Yes (Death, Other)
  Sender: FDA-Public Use
  Company Number: US-ABBVIE-4241570

PATIENT
  Age: 73 Year
  Sex: Female
  Weight: 68.038 kg

DRUGS (1)
  1. CREON [Suspect]
     Active Substance: PANCRELIPASE AMYLASE\PANCRELIPASE LIPASE\PANCRELIPASE PROTEASE
     Indication: Pancreatitis necrotising
     Route: 065
     Dates: start: 202011, end: 20221012

REACTIONS (4)
  - Cardiac arrest [Fatal]
  - Acute myeloid leukaemia [Not Recovered/Not Resolved]
  - Fall [Not Recovered/Not Resolved]
  - Drug level increased [Fatal]

NARRATIVE: CASE EVENT DATE: 20220901
